FAERS Safety Report 4333494-0 (Version None)
Quarter: 2004Q2

REPORT INFORMATION
  Report Type: 
  Country: None (occurrence: None)
  Receive Date: 20040401
  Receipt Date: 20040319
  Transmission Date: 20050107
  Serious: Yes (Hospitalization, Other)
  Sender: FDA-Public Use
  Company Number: 2004014289

PATIENT
  Age: 69 Year
  Sex: Male
  Weight: 104.3273 kg

DRUGS (13)
  1. TIKOSYN [Suspect]
     Indication: ATRIAL FIBRILLATION
     Dosage: 1000 MG (BID), ORAL
     Route: 048
     Dates: start: 20030701
  2. AMLODIPINE BESYLATE [Concomitant]
  3. QUINAPRIL HCL [Concomitant]
  4. GEMFIBROZIL [Concomitant]
  5. DIGOXIN [Concomitant]
  6. METOPROLOL (METOPROLOL) [Concomitant]
  7. ACETYLSALICYLATIC ACID (ACETYLSALICYLATIC ACID) [Concomitant]
  8. NICOTINIC ACID [Concomitant]
  9. CYANOCOBALAMIN  (CYANACOBALAMIN) [Concomitant]
  10. CENTRUM SILVER (ASCORBIC ACID, TOCOPHERYL ACETATE, RETINOL, ZINC, CALC [Concomitant]
  11. WARFARIN SODIUM [Concomitant]
  12. FUROSEMIDE [Concomitant]
  13. POTASSIUM (POTASSIUM) [Concomitant]

REACTIONS (8)
  - ATRIAL FIBRILLATION [None]
  - BLOOD POTASSIUM DECREASED [None]
  - DEHYDRATION [None]
  - DIARRHOEA [None]
  - GASTROINTESTINAL INFECTION [None]
  - MARKEDLY REDUCED DIETARY INTAKE [None]
  - POST PROCEDURAL HAEMORRHAGE [None]
  - POSTOPERATIVE WOUND COMPLICATION [None]
